FAERS Safety Report 8006224-9 (Version None)
Quarter: 2011Q4

REPORT INFORMATION
  Report Type: 
  Country: None (occurrence: None)
  Receive Date: 20111226
  Receipt Date: 20111212
  Transmission Date: 20120403
  Serious: Yes (Hospitalization)
  Sender: FDA-Public Use
  Company Number: IE-ELI_LILLY_AND_COMPANY-IE201112003794

PATIENT
  Sex: Female

DRUGS (14)
  1. GLUCOPHAGE [Concomitant]
  2. FORTEO [Suspect]
     Indication: OSTEOPOROSIS
     Dosage: 20 UG, UNKNOWN
     Route: 065
     Dates: start: 20111114
  3. MOTILIUM [Concomitant]
  4. CALCICHEW D3 [Concomitant]
  5. ALDACTIDE [Concomitant]
  6. LIPITOR [Concomitant]
  7. DELTACORTRIL [Concomitant]
  8. CETIRIZINE [Concomitant]
  9. COZAAR [Concomitant]
  10. DILTIAZEM HCL [Concomitant]
  11. ISOSORBIDE DINITRATE [Concomitant]
  12. TRAMADOL HCL [Concomitant]
  13. WARFARIN [Concomitant]
  14. NEXIUM [Concomitant]

REACTIONS (1)
  - MEDICAL DEVICE IMPLANTATION [None]
